FAERS Safety Report 25431280 (Version 2)
Quarter: 2025Q3

REPORT INFORMATION
  Report Type: Report from Study
  Country: US (occurrence: US)
  Receive Date: 20250613
  Receipt Date: 20250804
  Transmission Date: 20251021
  Serious: No
  Sender: MALLINCKRODT
  Company Number: US-MALLINCKRODT-MNK202503459

PATIENT
  Sex: Female

DRUGS (1)
  1. CORTICOTROPIN [Suspect]
     Active Substance: CORTICOTROPIN
     Indication: Sarcoidosis

REACTIONS (5)
  - Tremor [Unknown]
  - Limb discomfort [Unknown]
  - Dyspnoea [Unknown]
  - Mass [Recovered/Resolved]
  - Inappropriate schedule of product administration [Unknown]
